FAERS Safety Report 21571835 (Version 2)
Quarter: 2022Q4

REPORT INFORMATION
  Report Type: Spontaneous
  Country: US (occurrence: US)
  Receive Date: 20221109
  Receipt Date: 20221208
  Transmission Date: 20230113
  Serious: Yes (Other)
  Sender: FDA-Public Use
  Company Number: US-BAYER-2022A155576

PATIENT
  Age: 51 Year
  Sex: Male

DRUGS (2)
  1. GADAVIST [Suspect]
     Active Substance: GADOBUTROL
     Indication: Magnetic resonance imaging
     Dosage: 5 ML, ONCE
     Route: 042
     Dates: start: 20221102, end: 20221102
  2. GADAVIST [Suspect]
     Active Substance: GADOBUTROL
     Indication: Magnetic resonance imaging
     Dosage: 5 ML
     Route: 042
     Dates: start: 20221102, end: 20221102

REACTIONS (3)
  - Anaphylactic reaction [None]
  - Chest pain [None]
  - Hyperhidrosis [None]

NARRATIVE: CASE EVENT DATE: 20221102
